FAERS Safety Report 25561448 (Version 3)
Quarter: 2025Q3

REPORT INFORMATION
  Report Type: Spontaneous
  Country: US (occurrence: US)
  Receive Date: 20250716
  Receipt Date: 20250716
  Transmission Date: 20251020
  Serious: Yes (Other)
  Sender: NOVO NORDISK
  Company Number: US-NOVOPROD-1318457

PATIENT
  Age: 44 Year
  Sex: Female
  Weight: 139.7 kg

DRUGS (24)
  1. OZEMPIC [Suspect]
     Active Substance: SEMAGLUTIDE
     Indication: Obesity
     Dosage: 0.25 MG, QW
     Route: 058
     Dates: start: 20220721, end: 20220822
  2. OZEMPIC [Suspect]
     Active Substance: SEMAGLUTIDE
     Indication: Obesity
     Dosage: 1 MG, QW
     Route: 058
     Dates: start: 20220822, end: 20230103
  3. OZEMPIC [Suspect]
     Active Substance: SEMAGLUTIDE
     Indication: Obesity
     Dosage: 2 MG, QW
     Route: 058
     Dates: start: 20230104, end: 20230901
  4. BUPROPION [Concomitant]
     Active Substance: BUPROPION
     Indication: Depression
     Dates: start: 20170101
  5. TOPIRAMATE [Concomitant]
     Active Substance: TOPIRAMATE
     Indication: Migraine
     Dates: start: 20170101
  6. LORAZEPAM [Concomitant]
     Active Substance: LORAZEPAM
     Indication: Anxiety
     Dates: start: 20170101
  7. PHENTERMINE [Concomitant]
     Active Substance: PHENTERMINE
     Indication: Gastrooesophageal reflux disease
     Dates: start: 20230101
  8. OMEPRAZOLE [Concomitant]
     Active Substance: OMEPRAZOLE
     Indication: Dyspepsia
     Dates: start: 20170101
  9. ONDANSETRON [Concomitant]
     Active Substance: ONDANSETRON
     Indication: Nausea
     Dates: start: 20220722
  10. FAMOTIDINE [Concomitant]
     Active Substance: FAMOTIDINE
     Indication: Dyspepsia
     Dates: start: 20210101
  11. VITAMIN D3 [Concomitant]
     Active Substance: CHOLECALCIFEROL
     Indication: Vitamin D decreased
     Dates: start: 20170101
  12. PROPRANOLOL [Concomitant]
     Active Substance: PROPRANOLOL HYDROCHLORIDE
     Indication: Anxiety
     Dates: start: 20170101
  13. PROPRANOLOL [Concomitant]
     Active Substance: PROPRANOLOL HYDROCHLORIDE
     Indication: Hypertension
  14. HYDROXYZINE [Concomitant]
     Active Substance: HYDROXYZINE HYDROCHLORIDE
     Indication: Depression
     Dates: start: 20170101
  15. PLENVU [Concomitant]
     Active Substance: ASCORBIC ACID\POLYETHYLENE GLYCOL 3350\POTASSIUM CHLORIDE\SODIUM ASCORBATE\SODIUM CHLORIDE\SODIUM SU
     Indication: Impaired gastric emptying
     Dates: start: 20230101
  16. PLENVU [Concomitant]
     Active Substance: ASCORBIC ACID\POLYETHYLENE GLYCOL 3350\POTASSIUM CHLORIDE\SODIUM ASCORBATE\SODIUM CHLORIDE\SODIUM SU
     Indication: Constipation
  17. FUROSEMIDE [Concomitant]
     Active Substance: FUROSEMIDE
     Indication: Electrolyte imbalance
     Dates: start: 20230101
  18. FUROSEMIDE [Concomitant]
     Active Substance: FUROSEMIDE
     Indication: Oedema
  19. PAROXETINE HYDROCHLORIDE [Concomitant]
     Active Substance: PAROXETINE HYDROCHLORIDE
     Indication: Post-traumatic stress disorder
     Dates: start: 20170101
  20. ESTRADIOL [Concomitant]
     Active Substance: ESTRADIOL
     Indication: Prophylaxis
     Dates: start: 20200101
  21. BUSPIRONE [Concomitant]
     Active Substance: BUSPIRONE HYDROCHLORIDE
     Indication: Depression
     Dates: start: 20170101
  22. CYCLOBENZAPRINE [Concomitant]
     Active Substance: CYCLOBENZAPRINE
     Indication: Irritable bowel syndrome
     Dates: start: 20200101
  23. FENOFIBRATE [Concomitant]
     Active Substance: FENOFIBRATE
     Indication: Weight control
  24. VITAMINS [Concomitant]
     Active Substance: VITAMINS
     Indication: Ill-defined disorder
     Dates: start: 20170101

REACTIONS (3)
  - Impaired gastric emptying [Not Recovered/Not Resolved]
  - Constipation [Not Recovered/Not Resolved]
  - Product use in unapproved indication [Unknown]

NARRATIVE: CASE EVENT DATE: 20220721
